FAERS Safety Report 20034518 (Version 3)
Quarter: 2021Q4

REPORT INFORMATION
  Report Type: Spontaneous
  Country: US (occurrence: US)
  Receive Date: 20211104
  Receipt Date: 20211118
  Transmission Date: 20220303
  Serious: No
  Sender: FDA-Public Use
  Company Number: US-AMGEN-USASP2021169039

PATIENT
  Sex: Female

DRUGS (1)
  1. AIMOVIG [Suspect]
     Active Substance: ERENUMAB-AOOE
     Indication: Product used for unknown indication
     Dosage: 140 MILLIGRAM
     Route: 065

REACTIONS (5)
  - Injection site haemorrhage [Unknown]
  - Injection site vesicles [Recovered/Resolved]
  - Injection site pain [Recovered/Resolved]
  - Injection site erythema [Unknown]
  - Injection site bruising [Unknown]

NARRATIVE: CASE EVENT DATE: 20211028
